FAERS Safety Report 9472641 (Version 2)
Quarter: 2013Q3

REPORT INFORMATION
  Report Type: Report from Study
  Country: JP (occurrence: JP)
  Receive Date: 20130823
  Receipt Date: 20130906
  Transmission Date: 20140515
  Serious: Yes (Other)
  Sender: FDA-Public Use
  Company Number: JP-OTSUKA-JP-2013-13174

PATIENT
  Age: 74 Year
  Sex: Male
  Weight: 53.6 kg

DRUGS (23)
  1. SAMSCA [Suspect]
     Indication: FLUID RETENTION
     Dosage: 7.5 MG MILLIGRAM(S), QAM
     Route: 048
     Dates: start: 20130614, end: 20130614
  2. SAMSCA [Suspect]
     Dosage: 15 MG MILLIGRAM(S), QAM
     Route: 048
     Dates: start: 20130615
  3. ARTIST [Concomitant]
     Indication: CARDIAC FAILURE
     Dosage: 10 MG MILLIGRAM(S), DAILY DOSE
     Route: 048
  4. LASIX [Concomitant]
     Indication: CARDIAC FAILURE
     Dosage: 40 MG MILLIGRAM(S), DAILY DOSE
     Route: 048
  5. PARIET [Concomitant]
     Indication: PROPHYLAXIS
     Dosage: 10 MG MILLIGRAM(S), DAILY DOSE
     Route: 048
  6. FEBURIC [Concomitant]
     Indication: PROPHYLAXIS
     Dosage: 20 MG MILLIGRAM(S), DAILY DOSE
     Route: 048
  7. HICEE [Concomitant]
     Indication: CARDIAC FAILURE
     Dosage: 750 MG MILLIGRAM(S), DAILY DOSE
     Route: 048
  8. SELARA [Concomitant]
     Indication: CARDIAC FAILURE
     Dosage: 12.5 MG MILLIGRAM(S), DAILY DOSE
     Route: 048
  9. URSO [Concomitant]
     Indication: CARDIAC FAILURE
     Dosage: 300 MG MILLIGRAM(S), DAILY DOSE
     Route: 048
  10. NEUQUINON [Concomitant]
     Indication: CARDIAC FAILURE
     Dosage: 30 MG MILLIGRAM(S), DAILY DOSE
     Route: 048
  11. GASMOTIN [Concomitant]
     Indication: PROPHYLAXIS
     Dosage: 5 MG MILLIGRAM(S), DAILY DOSE
     Route: 048
  12. RENIVACE [Concomitant]
     Indication: CARDIAC FAILURE
     Dosage: 5 MG MILLIGRAM(S), DAILY DOSE
     Route: 048
  13. WARFARIN K [Concomitant]
     Indication: PROPHYLAXIS
     Dosage: 2 MG MILLIGRAM(S), DAILY DOSE
     Route: 048
  14. WARFARIN POTASSIUM [Concomitant]
     Dosage: 0.25 MG MILLIGRAM(S), DAILY DOSE
     Route: 048
  15. MAGNESIUM OXIDE [Concomitant]
     Dosage: 330 MG MILLIGRAM(S), DAILY DOSE
     Route: 048
  16. ALLELOCK [Concomitant]
     Dosage: 10 MG MILLIGRAM(S), DAILY DOSE
     Route: 048
  17. FLUITRAN [Concomitant]
     Indication: CARDIAC FAILURE
     Dosage: 0.5 MG MILLIGRAM(S), DAILY DOSE
     Route: 048
  18. MOHRUS [Concomitant]
     Dosage: 40 MG MILLIGRAM(S), DAILY DOSE
     Route: 061
  19. CRESTOR [Concomitant]
     Dosage: 2.5 MG MILLIGRAM(S), DAILY DOSE
     Route: 048
  20. MUCOSAL-L [Concomitant]
     Dosage: 45 MG MILLIGRAM(S), DAILY DOSE
     Route: 048
  21. MYSLEE [Concomitant]
     Dosage: 2.5 MG MILLIGRAM(S), DAILY DOSE
     Route: 048
  22. ASVERIN [Concomitant]
     Dosage: 90 MG MILLIGRAM(S), DAILY DOSE
     Route: 048
  23. POSTERISAN [Concomitant]
     Dosage: 2 G GRAM(S), DAILY DOSE
     Route: 054

REACTIONS (2)
  - Prerenal failure [Unknown]
  - Blood urea increased [Not Recovered/Not Resolved]
